FAERS Safety Report 17681748 (Version 1)
Quarter: 2020Q2

REPORT INFORMATION
  Report Type: Spontaneous
  Country: US (occurrence: US)
  Receive Date: 20200417
  Receipt Date: 20200417
  Transmission Date: 20200714
  Serious: No
  Sender: FDA-Public Use
  Company Number: US-UPSHER-SMITH LABORATORIES, LLC-2019USL00765

PATIENT
  Age: 31 Year
  Sex: Male
  Weight: 76.87 kg

DRUGS (3)
  1. OXANDROLONE. [Suspect]
     Active Substance: OXANDROLONE
     Indication: WEIGHT CONTROL
     Dosage: 20 MG, 2X/DAY
     Route: 048
     Dates: start: 201907
  2. OXANDROLONE. [Suspect]
     Active Substance: OXANDROLONE
     Indication: DECREASED APPETITE
     Dosage: 10 MG, 4X/DAY
     Route: 048
     Dates: start: 2019
  3. TESTOSTERONE CYPIONATE. [Concomitant]
     Active Substance: TESTOSTERONE CYPIONATE
     Dosage: 400 MG, EVERY 2 WEEKS
     Dates: start: 201909

REACTIONS (4)
  - Yawning [Not Recovered/Not Resolved]
  - Fatigue [Not Recovered/Not Resolved]
  - Prescribed overdose [Not Recovered/Not Resolved]
  - Hypersomnia [Not Recovered/Not Resolved]

NARRATIVE: CASE EVENT DATE: 201907
